FAERS Safety Report 19108174 (Version 2)
Quarter: 2025Q3

REPORT INFORMATION
  Report Type: Spontaneous
  Country: CA (occurrence: CA)
  Receive Date: 20210408
  Receipt Date: 20250919
  Transmission Date: 20251021
  Serious: Yes (Hospitalization)
  Sender: REGENERON
  Company Number: CA-SANOFI-00541128

PATIENT
  Age: 67 Year
  Sex: Female

DRUGS (1)
  1. PRALUENT [Suspect]
     Active Substance: ALIROCUMAB
     Indication: Product used for unknown indication
     Dosage: 150 MG, QOW, SOLUTION FOR INJECTION
     Dates: start: 2017

REACTIONS (8)
  - Venous thrombosis [Unknown]
  - Pain in extremity [Unknown]
  - Dyspnoea [Unknown]
  - Weight decreased [Unknown]
  - Stress [Unknown]
  - Insomnia [Unknown]
  - Exposure via skin contact [Unknown]
  - Accidental exposure to product [Unknown]

NARRATIVE: CASE EVENT DATE: 20240101
